FAERS Safety Report 13452341 (Version 1)
Quarter: 2017Q2

REPORT INFORMATION
  Report Type: Spontaneous
  Country: CA (occurrence: CA)
  Receive Date: 20170418
  Receipt Date: 20170418
  Transmission Date: 20170830
  Serious: No
  Sender: FDA-Public Use
  Company Number: CA-LPDUSPRD-20160242

PATIENT
  Sex: Female

DRUGS (1)
  1. DEXIRON (IRON DEXTRAN INJECTION, USP) (0134C) [Suspect]
     Active Substance: IRON DEXTRAN
     Dosage: 100 MG
     Route: 058

REACTIONS (2)
  - Injection site discolouration [Unknown]
  - Incorrect route of drug administration [Unknown]
